FAERS Safety Report 6085000-0 (Version None)
Quarter: 2009Q1

REPORT INFORMATION
  Report Type: 
  Country: None (occurrence: None)
  Receive Date: 20090220
  Receipt Date: 20090210
  Transmission Date: 20090719
  Serious: Yes (Other)
  Sender: FDA-Public Use
  Company Number: CA-AMGEN-US333898

PATIENT
  Age: 47 Year
  Sex: Male

DRUGS (2)
  1. ETANERCEPT [Suspect]
     Indication: PSORIASIS
     Route: 058
  2. METHOTREXATE [Concomitant]
     Indication: ARTHRITIS
     Route: 065

REACTIONS (2)
  - CONCOMITANT DISEASE PROGRESSION [None]
  - MYCOSIS FUNGOIDES [None]
